FAERS Safety Report 9928561 (Version 1)
Quarter: 2014Q1

REPORT INFORMATION
  Report Type: Spontaneous
  Country: BR (occurrence: BR)
  Receive Date: 20140227
  Receipt Date: 20140227
  Transmission Date: 20141002
  Serious: Yes (Other)
  Sender: FDA-Public Use
  Company Number: BR-009507513-1402BRA011142

PATIENT
  Age: 75 Year
  Sex: Female
  Weight: 68 kg

DRUGS (3)
  1. AFRIN [Suspect]
     Indication: NASAL CONGESTION
     Dosage: 2 DROPS IN EACH NOSTRIL, QPM
     Route: 045
     Dates: start: 2004, end: 20140210
  2. AFRIN [Suspect]
     Dosage: 2 DROPS IN EACH NOSTRIL, QPM
     Route: 045
     Dates: start: 20140211
  3. AAS [Concomitant]
     Indication: ANTIPLATELET THERAPY
     Dosage: 100 MG, QPM
     Route: 048
     Dates: start: 2011

REACTIONS (10)
  - Catheterisation cardiac [Unknown]
  - Coronary artery occlusion [Unknown]
  - Blood cholesterol increased [Not Recovered/Not Resolved]
  - Hypertension [Not Recovered/Not Resolved]
  - Osteoarthritis [Not Recovered/Not Resolved]
  - Diabetes mellitus [Not Recovered/Not Resolved]
  - Drug administration error [Unknown]
  - Drug administration error [Unknown]
  - Inappropriate schedule of drug administration [Unknown]
  - Drug ineffective [Unknown]
